FAERS Safety Report 6453224-6 (Version None)
Quarter: 2009Q4

REPORT INFORMATION
  Report Type: 
  Country: None (occurrence: None)
  Receive Date: 20091124
  Receipt Date: 20091118
  Transmission Date: 20100525
  Serious: Yes (Death, Hospitalization, Other)
  Sender: FDA-Public Use
  Company Number: NL-CELGENEUS-114-21880-09102479

PATIENT
  Sex: Male
  Weight: 64 kg

DRUGS (10)
  1. REVLIMID [Suspect]
     Indication: MULTIPLE MYELOMA
     Route: 048
     Dates: start: 20091024, end: 20091027
  2. PREDNISONE [Suspect]
     Indication: MULTIPLE MYELOMA
     Route: 065
     Dates: start: 20091024, end: 20091027
  3. PREDNISONE [Suspect]
     Indication: POLYMYALGIA RHEUMATICA
     Route: 048
     Dates: start: 20090925
  4. MELPHALAN [Suspect]
     Indication: MULTIPLE MYELOMA
     Route: 065
     Dates: start: 20091024, end: 20091027
  5. ASPIRIN [Concomitant]
     Indication: DRUG USE FOR UNKNOWN INDICATION
     Route: 048
     Dates: start: 20090925, end: 20091029
  6. FOLIUM ACID [Concomitant]
     Indication: SUPPLEMENTATION THERAPY
     Route: 048
     Dates: start: 20090925, end: 20091029
  7. ALENDROMINE [Concomitant]
     Indication: POLYMYALGIA RHEUMATICA
     Route: 048
     Dates: start: 20090925, end: 20091029
  8. CALCIUM [Concomitant]
     Indication: POLYMYALGIA RHEUMATICA
     Route: 048
     Dates: start: 20090925, end: 20091029
  9. FENTANYL-100 [Concomitant]
     Indication: PAIN
     Route: 058
     Dates: start: 20090925, end: 20091029
  10. PANCREASE [Concomitant]
     Indication: PANCREATIC INSUFFICIENCY
     Route: 048
     Dates: start: 20090925, end: 20091029

REACTIONS (3)
  - PYREXIA [None]
  - RENAL FAILURE [None]
  - SEPSIS [None]
